FAERS Safety Report 4501875-8 (Version None)
Quarter: 2004Q4

REPORT INFORMATION
  Report Type: 
  Country: None (occurrence: None)
  Receive Date: 20041109
  Receipt Date: 20041102
  Transmission Date: 20050328
  Serious: Yes (Hospitalization)
  Sender: FDA-Public Use
  Company Number: 2004081467

PATIENT
  Age: 73 Year
  Sex: Female
  Weight: 72 kg

DRUGS (7)
  1. AMLODIPINE (AMLODIPINE) [Suspect]
     Indication: HYPERTENSION
     Dosage: 5 MG (5 MG, 1 IN 1 D), ORAL
     Route: 048
     Dates: start: 20040401, end: 20040414
  2. FUROSEMIDE [Concomitant]
  3. ASPIRIN [Concomitant]
  4. AMIODARONE HCL [Concomitant]
  5. GLYBURIDE [Concomitant]
  6. METFORMIN HCL [Concomitant]
  7. ISOSORBIDE MONONITRATE [Concomitant]

REACTIONS (6)
  - DYSPNOEA [None]
  - GENERALISED OEDEMA [None]
  - HYPOTENSION [None]
  - RENAL FAILURE ACUTE [None]
  - URINARY RETENTION [None]
  - WEIGHT INCREASED [None]
